FAERS Safety Report 8578080-1 (Version None)
Quarter: 2012Q3

REPORT INFORMATION
  Report Type: 
  Country: None (occurrence: None)
  Receive Date: 20120808
  Receipt Date: 20120806
  Transmission Date: 20120928
  Serious: Yes (Life-Threatening, Other)
  Sender: FDA-Public Use
  Company Number: PHHY2012DE067828

PATIENT
  Sex: Female

DRUGS (2)
  1. CLOZAPINE [Suspect]
     Dosage: 300 MG, (0-0-50-250-MG QD)
     Route: 048
     Dates: start: 20110801
  2. CLOZAPINE [Suspect]
     Dosage: 100 MG, QID
     Route: 048
     Dates: start: 20110201, end: 20110801

REACTIONS (7)
  - SALIVARY HYPERSECRETION [None]
  - FEAR OF DEATH [None]
  - TACHYCARDIA [None]
  - INCONTINENCE [None]
  - VIITH NERVE PARALYSIS [None]
  - DYSARTHRIA [None]
  - CEREBROVASCULAR ACCIDENT [None]
